FAERS Safety Report 9470327 (Version 1)
Quarter: 2013Q3

REPORT INFORMATION
  Report Type: Spontaneous
  Country: US (occurrence: US)
  Receive Date: 20130822
  Receipt Date: 20130822
  Transmission Date: 20140515
  Serious: No
  Sender: FDA-Public Use
  Company Number: US-SANOFI-AVENTIS-2012SA081981

PATIENT
  Age: 82 Year
  Sex: Female

DRUGS (5)
  1. MULTAQ [Suspect]
     Indication: ATRIAL FIBRILLATION
     Route: 048
     Dates: start: 201210
  2. MULTAQ [Suspect]
     Indication: EXTRASYSTOLES
     Route: 048
     Dates: start: 201210
  3. DABIGATRAN ETEXILATE [Suspect]
     Indication: ATRIAL FIBRILLATION
     Route: 065
     Dates: start: 201210
  4. DABIGATRAN ETEXILATE [Suspect]
     Indication: EXTRASYSTOLES
     Route: 065
     Dates: start: 201210
  5. ATENOLOL [Concomitant]

REACTIONS (2)
  - Extrasystoles [Not Recovered/Not Resolved]
  - Emotional disorder [Not Recovered/Not Resolved]
